FAERS Safety Report 12535344 (Version 7)
Quarter: 2019Q4

REPORT INFORMATION
  Report Type: Report from Study
  Country: US (occurrence: US)
  Receive Date: 20160707
  Receipt Date: 20191115
  Transmission Date: 20200122
  Serious: Yes (Hospitalization, Other)
  Sender: FDA-Public Use
  Company Number: US-ROCHE-1789977

PATIENT
  Age: 63 Year
  Sex: Male
  Weight: 97.5 kg

DRUGS (7)
  1. VEMURAFENIB. [Suspect]
     Active Substance: VEMURAFENIB
     Route: 048
     Dates: start: 20160301
  2. IRINOTECAN [Suspect]
     Active Substance: IRINOTECAN
     Indication: COLORECTAL CANCER METASTATIC
     Route: 065
     Dates: start: 20151130, end: 20160801
  3. CETUXIMAB. [Suspect]
     Active Substance: CETUXIMAB
     Dosage: LAST DOSE ADMINISTRATION DATE: 12/APR/2016
     Route: 065
     Dates: start: 20151130, end: 20160802
  4. VEMURAFENIB. [Suspect]
     Active Substance: VEMURAFENIB
     Indication: COLORECTAL CANCER METASTATIC
     Route: 048
     Dates: start: 20160628, end: 20160802
  5. CETUXIMAB. [Suspect]
     Active Substance: CETUXIMAB
     Indication: COLORECTAL CANCER METASTATIC
     Dosage: MOST RECENT DOSE ON 09/FEB/2016
     Route: 065
     Dates: start: 20160209
  6. VEMURAFENIB. [Suspect]
     Active Substance: VEMURAFENIB
     Dosage: LAST DOSE ADMINISTRATION DATE: 26/APR/2016
     Route: 048
     Dates: start: 20160209, end: 20160801
  7. IRINOTECAN [Suspect]
     Active Substance: IRINOTECAN
     Indication: COLORECTAL CANCER
     Dosage: LAST DOSE ADMINISTRATION DATE: 12/APR/2016
     Route: 065
     Dates: start: 20151130, end: 20160802

REACTIONS (4)
  - Nephrolithiasis [Recovered/Resolved]
  - Embolism [Recovered/Resolved]
  - Pulmonary embolism [Recovered/Resolved]
  - Electrocardiogram QT prolonged [Recovered/Resolved]

NARRATIVE: CASE EVENT DATE: 20160223
